FAERS Safety Report 21698360 (Version 2)
Quarter: 2022Q4

REPORT INFORMATION
  Report Type: Spontaneous
  Country: US (occurrence: US)
  Receive Date: 20221208
  Receipt Date: 20221227
  Transmission Date: 20230113
  Serious: Yes (Death, Life-Threatening, Hospitalization, Other)
  Sender: FDA-Public Use
  Company Number: None

PATIENT
  Age: 50 Year
  Sex: Male

DRUGS (8)
  1. PREDNISOLONE [Suspect]
     Active Substance: PREDNISOLONE
     Indication: Morvan syndrome
     Dosage: UNK
     Route: 065
     Dates: end: 2018
  2. PREDNISOLONE [Suspect]
     Active Substance: PREDNISOLONE
     Indication: Paraneoplastic syndrome
     Dosage: 10 MILLIGRAM DAILY
     Route: 065
  3. AZATHIOPRINE [Suspect]
     Active Substance: AZATHIOPRINE
     Indication: Morvan syndrome
     Dosage: UNK
     Route: 065
     Dates: end: 2018
  4. AZATHIOPRINE [Suspect]
     Active Substance: AZATHIOPRINE
     Indication: Paraneoplastic syndrome
  5. RITUXIMAB [Suspect]
     Active Substance: RITUXIMAB
     Indication: Morvan syndrome
     Dosage: UNK, (ONE DOSE)
     Route: 065
  6. RITUXIMAB [Suspect]
     Active Substance: RITUXIMAB
     Indication: Paraneoplastic syndrome
     Dosage: UNK
     Route: 065
  7. METHYLPREDNISOLONE [Suspect]
     Active Substance: METHYLPREDNISOLONE
     Indication: Morvan syndrome
     Dosage: UNK
     Route: 065
  8. METHYLPREDNISOLONE [Suspect]
     Active Substance: METHYLPREDNISOLONE
     Indication: Paraneoplastic syndrome

REACTIONS (5)
  - Urosepsis [Fatal]
  - Pyelonephritis [Fatal]
  - Urinary tract infection [Unknown]
  - Drug ineffective [Unknown]
  - Off label use [Unknown]
